FAERS Safety Report 7686331-0 (Version None)
Quarter: 2011Q3

REPORT INFORMATION
  Report Type: 
  Country: None (occurrence: None)
  Receive Date: 20110816
  Receipt Date: 20110809
  Transmission Date: 20111222
  Serious: Yes (Other)
  Sender: FDA-Public Use
  Company Number: FR-VIIV HEALTHCARE LIMITED-A0885985B

PATIENT
  Age: 31 Year
  Sex: Female

DRUGS (15)
  1. VIREAD [Suspect]
     Indication: ANTIVIRAL TREATMENT
     Route: 065
     Dates: start: 20050101, end: 20091001
  2. NORVIR [Suspect]
     Indication: ANTIVIRAL TREATMENT
     Route: 065
     Dates: start: 20091119
  3. ZIAGEN [Suspect]
     Indication: ANTIVIRAL TREATMENT
     Route: 065
     Dates: end: 20091001
  4. VIREAD [Suspect]
     Route: 065
     Dates: start: 20091119
  5. CELESTONE [Concomitant]
     Route: 065
  6. RETROVIR [Suspect]
     Indication: ANTIVIRAL TREATMENT
     Route: 065
     Dates: start: 20100406, end: 20100406
  7. RETROVIR [Concomitant]
     Route: 064
     Dates: start: 20100406, end: 20100406
  8. VITAMIN D [Concomitant]
     Route: 065
  9. REYATAZ [Suspect]
     Indication: ANTIVIRAL TREATMENT
     Route: 065
     Dates: start: 20091119
  10. CONCURRENT MEDICATIONS [Concomitant]
     Route: 065
  11. NICARDIPINE HCL [Concomitant]
     Route: 065
  12. SUSTIVA [Suspect]
     Indication: ANTIVIRAL TREATMENT
     Route: 065
     Dates: end: 20091001
  13. ZIAGEN [Suspect]
     Route: 065
     Dates: start: 20091119
  14. SPASFON [Concomitant]
     Route: 065
  15. AMOXICILLIN TRIHYDRATE [Concomitant]
     Route: 065

REACTIONS (7)
  - ALBUMINURIA [None]
  - PREMATURE DELIVERY [None]
  - PROTEINURIA [None]
  - BLOOD UREA DECREASED [None]
  - ANAEMIA [None]
  - BLOOD ALKALINE PHOSPHATASE INCREASED [None]
  - MATERNAL EXPOSURE DURING PREGNANCY [None]
